FAERS Safety Report 20353015 (Version 1)
Quarter: 2022Q1

REPORT INFORMATION
  Report Type: Spontaneous
  Country: QU (occurrence: None)
  Receive Date: 20220118
  Receipt Date: 20220118
  Transmission Date: 20220423
  Serious: Yes (Other)
  Sender: FDA-Public Use
  Company Number: None

PATIENT
  Age: 48 Year
  Sex: Male
  Weight: 133.65 kg

DRUGS (1)
  1. EMGALITY [Suspect]
     Active Substance: GALCANEZUMAB-GNLM
     Indication: Tension headache
     Dosage: OTHER QUANTITY : 2 INJECTION(S);?OTHER FREQUENCY : LOADING DOSE;?
     Route: 058
     Dates: start: 20220118, end: 20220118

REACTIONS (4)
  - Hyperhidrosis [None]
  - Anxiety [None]
  - Palpitations [None]
  - Extrasystoles [None]

NARRATIVE: CASE EVENT DATE: 20220118
